FAERS Safety Report 6690673-5 (Version None)
Quarter: 2010Q2

REPORT INFORMATION
  Report Type: 
  Country: None (occurrence: None)
  Receive Date: 20100421
  Receipt Date: 20090909
  Transmission Date: 20101027
  Serious: No
  Sender: FDA-Public Use
  Company Number: US-BRISTOL-MYERS SQUIBB COMPANY-14772495

PATIENT
  Sex: Female

DRUGS (1)
  1. HYDREA [Suspect]
     Dosage: HYDREA CAPS USP LOW DOSE

REACTIONS (1)
  - CARDIAC DISORDER [None]
